FAERS Safety Report 20389589 (Version 7)
Quarter: 2022Q3

REPORT INFORMATION
  Report Type: Report from Study
  Country: CO (occurrence: CO)
  Receive Date: 20220128
  Receipt Date: 20220929
  Transmission Date: 20221026
  Serious: Yes (Life-Threatening, Hospitalization)
  Sender: FDA-Public Use
  Company Number: CO-NOVARTISPH-NVSC2021CO240371

PATIENT
  Sex: Female

DRUGS (4)
  1. TASIGNA [Suspect]
     Active Substance: NILOTINIB
     Indication: Chronic myeloid leukaemia
     Dosage: 400 MG, Q12H
     Route: 048
     Dates: start: 20201002
  2. TASIGNA [Suspect]
     Active Substance: NILOTINIB
     Dosage: 300 MG, Q12H
     Route: 048
     Dates: start: 20201002
  3. TASIGNA [Suspect]
     Active Substance: NILOTINIB
     Dosage: UNK
     Route: 048
  4. AMPICILLIN [Suspect]
     Active Substance: AMPICILLIN
     Indication: Product used for unknown indication
     Dosage: UNK
     Route: 065

REACTIONS (32)
  - Platelet count decreased [Unknown]
  - Amenorrhoea [Unknown]
  - Malaise [Unknown]
  - Haemoglobin decreased [Unknown]
  - Asthenia [Unknown]
  - Gait inability [Unknown]
  - Sensory loss [Unknown]
  - Crying [Unknown]
  - Eating disorder [Unknown]
  - Gastric dilatation [Unknown]
  - Stress [Unknown]
  - Platelet disorder [Unknown]
  - Screaming [Unknown]
  - Lung disorder [Unknown]
  - C-reactive protein decreased [Unknown]
  - Anger [Unknown]
  - Confusional state [Unknown]
  - Hypersensitivity [Unknown]
  - Urticaria [Unknown]
  - Tumour marker increased [Unknown]
  - Gastritis [Unknown]
  - Pain [Unknown]
  - Tachycardia [Unknown]
  - Vomiting [Unknown]
  - Nasopharyngitis [Unknown]
  - Drug ineffective [Unknown]
  - Hyperhidrosis [Unknown]
  - Decreased appetite [Unknown]
  - Anxiety [Unknown]
  - Headache [Unknown]
  - Dizziness [Unknown]
  - Fatigue [Unknown]
